FAERS Safety Report 16050929 (Version 1)
Quarter: 2019Q1

REPORT INFORMATION
  Report Type: Spontaneous
  Country: GR (occurrence: GR)
  Receive Date: 20190308
  Receipt Date: 20190308
  Transmission Date: 20190418
  Serious: Yes (Other)
  Sender: FDA-Public Use
  Company Number: GR-TEVA-2019-GR-1019848

PATIENT
  Age: 56 Year
  Sex: Male
  Weight: 100 kg

DRUGS (1)
  1. DOCETAXEL TEVA [Suspect]
     Active Substance: DOCETAXEL
     Route: 042

REACTIONS (5)
  - Eyelid oedema [Recovered/Resolved]
  - Dysphonia [Recovered/Resolved]
  - Face oedema [Recovered/Resolved]
  - Feeling hot [Recovered/Resolved]
  - Erythema [Recovered/Resolved]

NARRATIVE: CASE EVENT DATE: 20120130
